FAERS Safety Report 7146672-2 (Version None)
Quarter: 2010Q4

REPORT INFORMATION
  Report Type: 
  Country: None (occurrence: None)
  Receive Date: 20101208
  Receipt Date: 20101130
  Transmission Date: 20110411
  Serious: Yes (Other)
  Sender: FDA-Public Use
  Company Number: US-CELGENEUS-163-21880-10102813

PATIENT
  Age: 74 Year
  Sex: Male

DRUGS (24)
  1. REVLIMID [Suspect]
     Indication: MANTLE CELL LYMPHOMA
     Route: 048
     Dates: start: 20080101, end: 20100901
  2. RITUXIMAB [Suspect]
     Indication: MANTLE CELL LYMPHOMA
     Route: 065
     Dates: start: 20080101, end: 20101025
  3. ACIDOPHILLUS [Concomitant]
     Route: 048
  4. ASPIRIN [Concomitant]
     Indication: ANTICOAGULANT THERAPY
     Route: 048
  5. CHONDROITIN + GLUCOSAMINE [Concomitant]
     Indication: SUPPLEMENTATION THERAPY
     Route: 048
  6. COQ-10 [Concomitant]
     Route: 048
  7. DIOVAN [Concomitant]
     Indication: BLOOD PRESSURE
     Route: 048
  8. FISH OIL [Concomitant]
     Indication: SUPPLEMENTATION THERAPY
     Route: 048
  9. MULTI-VITAMIN [Concomitant]
     Indication: SUPPLEMENTATION THERAPY
     Route: 048
  10. FLUTICASONE PROPIONATE [Concomitant]
     Indication: ALLERGIC COUGH
     Dosage: 1 PUFF
     Route: 045
  11. HEPARIN [Concomitant]
     Dosage: 200 UNIT
  12. LEXAPRO [Concomitant]
     Route: 048
  13. LIPITOR [Concomitant]
     Route: 048
  14. MIRALAX [Concomitant]
     Indication: CONSTIPATION
     Route: 048
  15. NEUPOGEN [Concomitant]
     Indication: NEUTROPENIA
  16. PREVACID [Concomitant]
     Route: 048
  17. SAW PALMETTO [Concomitant]
     Route: 048
  18. VALTREX [Concomitant]
     Route: 048
  19. VANTIN [Concomitant]
     Route: 048
  20. VIT B12 [Concomitant]
     Indication: SUPPLEMENTATION THERAPY
  21. VORICONAZOLE [Concomitant]
     Route: 048
  22. VORINOSTAT [Concomitant]
     Route: 048
  23. WELCHOL [Concomitant]
     Route: 048
  24. ZYRTEC [Concomitant]
     Route: 048

REACTIONS (1)
  - MYELODYSPLASTIC SYNDROME [None]
